FAERS Safety Report 23906781 (Version 2)
Quarter: 2025Q1

REPORT INFORMATION
  Report Type: Spontaneous
  Country: US (occurrence: US)
  Receive Date: 20240528
  Receipt Date: 20250206
  Transmission Date: 20250408
  Serious: No
  Sender: MERCK
  Company Number: US-009507513-2405USA002028

PATIENT
  Age: 92 Year
  Sex: Female

DRUGS (1)
  1. KEYTRUDA [Suspect]
     Active Substance: PEMBROLIZUMAB
     Indication: Squamous cell carcinoma of skin

REACTIONS (1)
  - Off label use [Unknown]
